FAERS Safety Report 4599704-X (Version None)
Quarter: 2005Q1

REPORT INFORMATION
  Report Type: 
  Country: None (occurrence: None)
  Receive Date: 20050303
  Receipt Date: 20050218
  Transmission Date: 20050727
  Serious: Yes (Hospitalization)
  Sender: FDA-Public Use
  Company Number: 200416080BCC

PATIENT
  Age: 56 Year
  Sex: Female
  Weight: 88.4514 kg

DRUGS (3)
  1. ALEVE (CAPLET) [Suspect]
     Indication: EXOSTOSIS
     Dosage: 220 MG, BID, ORAL
     Route: 048
     Dates: start: 20041205, end: 20041211
  2. CORAL [Concomitant]
  3. GLUCOSAMINE [Concomitant]

REACTIONS (6)
  - CHEST PAIN [None]
  - DYSPNOEA [None]
  - FEELING ABNORMAL [None]
  - GASTROOESOPHAGEAL REFLUX DISEASE [None]
  - HYPERHIDROSIS [None]
  - SKIN DISCOLOURATION [None]
